FAERS Safety Report 4835705-1 (Version None)
Quarter: 2005Q4

REPORT INFORMATION
  Report Type: 
  Country: None (occurrence: None)
  Receive Date: 20051123
  Receipt Date: 20051110
  Transmission Date: 20060501
  Serious: Yes (Other)
  Sender: FDA-Public Use
  Company Number: US-KINGPHARMUSA00001-K200501475

PATIENT
  Age: 77 Year
  Sex: Female

DRUGS (1)
  1. INTAL [Suspect]
     Dosage: 2 PUFFS, QID
     Dates: start: 20041201, end: 20051001

REACTIONS (8)
  - ALANINE AMINOTRANSFERASE INCREASED [None]
  - ASPARTATE AMINOTRANSFERASE INCREASED [None]
  - EOSINOPHILIA [None]
  - HEPATIC ENZYME INCREASED [None]
  - HEPATITIS C [None]
  - HEPATITIS C RNA POSITIVE [None]
  - MALAISE [None]
  - VASCULITIS [None]
